FAERS Safety Report 5466375-X (Version None)
Quarter: 2007Q3

REPORT INFORMATION
  Report Type: 
  Country: None (occurrence: None)
  Receive Date: 20070920
  Receipt Date: 20070908
  Transmission Date: 20080115
  Serious: Yes (Other)
  Sender: FDA-Public Use
  Company Number: CHPA2007US09489

PATIENT
  Age: 71 Year
  Sex: Male

DRUGS (1)
  1. MAALOX ANTACID/ANTIGAS MAX LIQ [Suspect]
     Indication: STOMACH DISCOMFORT
     Dosage: 4 TSP, ONCE/SINGLE, ORAL
     Route: 048
     Dates: start: 20070908

REACTIONS (2)
  - FAECES DISCOLOURED [None]
  - HAEMATOCHEZIA [None]
